FAERS Safety Report 20788978 (Version 2)
Quarter: 2023Q2

REPORT INFORMATION
  Report Type: Spontaneous
  Country: US (occurrence: US)
  Receive Date: 20220505
  Receipt Date: 20230530
  Transmission Date: 20230721
  Serious: No
  Sender: FDA-Public Use
  Company Number: US-UCBSA-2021014415

PATIENT
  Sex: Female

DRUGS (3)
  1. CIMZIA [Suspect]
     Active Substance: CERTOLIZUMAB PEGOL
     Indication: Rheumatoid arthritis
     Dosage: 200 MILLIGRAM, EV 2 WEEKS(QOW)
     Route: 058
     Dates: start: 202008
  2. VITAMIN B12 [Concomitant]
     Active Substance: CYANOCOBALAMIN
  3. IRON [Concomitant]
     Active Substance: IRON

REACTIONS (9)
  - Back pain [Unknown]
  - Neck pain [Unknown]
  - Arthralgia [Unknown]
  - Viral infection [Unknown]
  - Nausea [Unknown]
  - Headache [Unknown]
  - Full blood count abnormal [Unknown]
  - Injection site pain [Unknown]
  - Needle issue [Unknown]
